FAERS Safety Report 15347126 (Version 1)
Quarter: 2018Q3

REPORT INFORMATION
  Report Type: Spontaneous
  Country: US (occurrence: US)
  Receive Date: 20180904
  Receipt Date: 20180904
  Transmission Date: 20181010
  Serious: No
  Sender: FDA-Public Use
  Company Number: US-BIOGEN-2018BI00627274

PATIENT
  Sex: Male

DRUGS (1)
  1. TECFIDERA [Suspect]
     Active Substance: DIMETHYL FUMARATE
     Indication: MULTIPLE SCLEROSIS
     Route: 048
     Dates: start: 20171226, end: 20180820

REACTIONS (5)
  - Abdominal distension [Unknown]
  - Drug dose omission [Unknown]
  - Abdominal discomfort [Unknown]
  - Memory impairment [Not Recovered/Not Resolved]
  - Abdominal pain upper [Unknown]
